FAERS Safety Report 11001895 (Version 1)
Quarter: 2015Q2

REPORT INFORMATION
  Report Type: Spontaneous
  Country: US (occurrence: US)
  Receive Date: 20150408
  Receipt Date: 20150408
  Transmission Date: 20150821
  Serious: Yes (Other)
  Sender: FDA-Public Use
  Company Number: US-ELI_LILLY_AND_COMPANY-US201504001027

PATIENT

DRUGS (2)
  1. GEMCITABINE HYDROCHLORIDE. [Suspect]
     Active Substance: GEMCITABINE HYDROCHLORIDE
     Indication: NEOPLASM
     Dosage: 1000 MG/M2, CYCLICAL
     Route: 065
  2. ALISERTIB [Suspect]
     Active Substance: ALISERTIB
     Indication: NEOPLASM
     Dosage: 40 MG, BID
     Route: 048

REACTIONS (1)
  - Urinary tract infection [Unknown]
